FAERS Safety Report 8403630 (Version 2)
Quarter: 2015Q1

REPORT INFORMATION
  Report Type: Report from Study
  Country: US (occurrence: US)
  Receive Date: 20120213
  Receipt Date: 20150123
  Transmission Date: 20150721
  Serious: Yes (Other)
  Sender: FDA-Public Use
  Company Number: US-ROCHE-1030128

PATIENT

DRUGS (3)
  1. BEVACIZUMAB [Suspect]
     Active Substance: BEVACIZUMAB
     Indication: RENAL CELL CARCINOMA
     Dosage: DOSE LEVEL I
     Route: 042
  2. TEMSIROLIMUS [Suspect]
     Active Substance: TEMSIROLIMUS
     Indication: RENAL CELL CARCINOMA
     Route: 042
  3. BEVACIZUMAB [Suspect]
     Active Substance: BEVACIZUMAB
     Dosage: DOSE LEVEL II
     Route: 042

REACTIONS (25)
  - Nausea [Unknown]
  - Intestinal perforation [Unknown]
  - Hypercholesterolaemia [Unknown]
  - Hypertension [Unknown]
  - Anaemia [Unknown]
  - Mucosal inflammation [Unknown]
  - Decreased appetite [Unknown]
  - Thrombocytopenia [Unknown]
  - Headache [Unknown]
  - Palmar-plantar erythrodysaesthesia syndrome [Unknown]
  - Proteinuria [Unknown]
  - Pneumonitis [Unknown]
  - Blood alkaline phosphatase increased [Unknown]
  - Epistaxis [Unknown]
  - Weight decreased [Unknown]
  - Vomiting [Unknown]
  - Peritoneal haemorrhage [Unknown]
  - Haemorrhage [Unknown]
  - Hyperglycaemia [Unknown]
  - Stomatitis [Unknown]
  - Upper gastrointestinal haemorrhage [Unknown]
  - Diarrhoea [Unknown]
  - Fatigue [Unknown]
  - Hypertriglyceridaemia [Unknown]
  - Abdominal pain [Unknown]
